FAERS Safety Report 7970644-9 (Version None)
Quarter: 2011Q4

REPORT INFORMATION
  Report Type: 
  Country: None (occurrence: None)
  Receive Date: 20111212
  Receipt Date: 20111201
  Transmission Date: 20120403
  Serious: Yes (Hospitalization, Other)
  Sender: FDA-Public Use
  Company Number: US-AMGEN-USASP2011063753

PATIENT
  Age: 48 Year
  Sex: Female

DRUGS (2)
  1. ENBREL [Suspect]
     Indication: PSORIASIS
  2. ENBREL [Suspect]
     Indication: PSORIATIC ARTHROPATHY
     Dosage: 50 MG, QWK
     Dates: start: 20081107

REACTIONS (10)
  - ASTHMA [None]
  - VITAL CAPACITY DECREASED [None]
  - BRONCHITIS [None]
  - DYSPNOEA [None]
  - OXYGEN SATURATION DECREASED [None]
  - HEART RATE IRREGULAR [None]
  - BLOOD POTASSIUM ABNORMAL [None]
  - SINUSITIS [None]
  - OEDEMA PERIPHERAL [None]
  - NASOPHARYNGITIS [None]
